FAERS Safety Report 9751535 (Version 1)
Quarter: 2013Q4

REPORT INFORMATION
  Report Type: Spontaneous
  Country: US (occurrence: US)
  Receive Date: 20131212
  Receipt Date: 20131212
  Transmission Date: 20140711
  Serious: Yes (Hospitalization)
  Sender: FDA-Public Use
  Company Number: US-NAPPMUNDI-USA-2013-0104232

PATIENT
  Sex: Female

DRUGS (2)
  1. DILAUDID TABLET [Suspect]
     Indication: PAIN
     Dosage: 8 MG, UNK
     Route: 048
     Dates: start: 2005
  2. METHADONE [Suspect]
     Indication: PRODUCT USED FOR UNKNOWN INDICATION
     Dosage: UNKNOWN

REACTIONS (2)
  - Grand mal convulsion [Unknown]
  - Intentional drug misuse [Unknown]
